FAERS Safety Report 24624501 (Version 1)
Quarter: 2024Q4

REPORT INFORMATION
  Report Type: Spontaneous
  Country: US (occurrence: None)
  Receive Date: 20241115
  Receipt Date: 20241115
  Transmission Date: 20250114
  Serious: Yes (Other)
  Sender: Public
  Company Number: None

PATIENT
  Age: 20 Year
  Sex: Male
  Weight: 67.5 kg

DRUGS (5)
  1. MIRAPEX [Suspect]
     Active Substance: PRAMIPEXOLE DIHYDROCHLORIDE
     Dosage: 30 TABLET(S) ORAL?
     Route: 048
  2. PROPYLHEXEDRINE [Concomitant]
  3. MODAFINIL [Concomitant]
  4. PRAMIPEXOLE [Concomitant]
  5. DRONABINOL [Concomitant]
     Active Substance: DRONABINOL

REACTIONS (3)
  - Intentional overdose [None]
  - Dyskinesia [None]
  - Central nervous system stimulation [None]

NARRATIVE: CASE EVENT DATE: 20240610
